FAERS Safety Report 9010342 (Version 1)
Quarter: 2013Q1

REPORT INFORMATION
  Report Type: Spontaneous
  Country: US (occurrence: US)
  Receive Date: 20130109
  Receipt Date: 20130109
  Transmission Date: 20140127
  Serious: Yes (Hospitalization, Other)
  Sender: FDA-Public Use
  Company Number: US-BAYER-2013-001384

PATIENT
  Age: 25 Year
  Sex: Female
  Weight: 65.76 kg

DRUGS (2)
  1. YASMIN [Suspect]
  2. CYMBALTA [Concomitant]
     Indication: MIGRAINE
     Dosage: 60 MG, UNK

REACTIONS (2)
  - Deep vein thrombosis [None]
  - Cholecystitis chronic [None]
